FAERS Safety Report 23665493 (Version 1)
Quarter: 2024Q1

REPORT INFORMATION
  Report Type: Spontaneous
  Country: JP (occurrence: JP)
  Receive Date: 20240323
  Receipt Date: 20240323
  Transmission Date: 20240409
  Serious: Yes (Life-Threatening, Hospitalization, Disabling, Other)
  Sender: FDA-Public Use
  Company Number: JP-002147023-NVSJ2022JP276374

PATIENT
  Age: 16 Year
  Sex: Female
  Weight: 49.6 kg

DRUGS (9)
  1. ARRANON [Suspect]
     Active Substance: NELARABINE
     Indication: T-cell type acute leukaemia
     Dosage: 960 MG, QD
     Route: 042
     Dates: start: 20210707, end: 20210711
  2. {NO MATCH FOUND} [Concomitant]
     Indication: Tumour lysis syndrome
     Dosage: 120 MG
     Route: 042
     Dates: start: 20210707, end: 20210711
  3. HYDROXYZINE HYDROCHLORIDE [Concomitant]
     Active Substance: HYDROXYZINE HYDROCHLORIDE
     Indication: Allergic transfusion reaction
     Dosage: 50 MG, QD
     Route: 041
     Dates: start: 20210707, end: 20210711
  4. ETOPOSIDE [Concomitant]
     Active Substance: ETOPOSIDE
     Indication: T-cell type acute leukaemia
     Dosage: 150 MG, QD
     Route: 042
     Dates: start: 20210707, end: 20210711
  5. FLUDARABINE PHOSPHATE [Concomitant]
     Active Substance: FLUDARABINE PHOSPHATE
     Indication: T-cell type acute leukaemia
     Dosage: 44 MG, QD
     Route: 042
     Dates: start: 20210707, end: 20210711
  6. GRANISETRON [Concomitant]
     Active Substance: GRANISETRON
     Indication: Antiemetic supportive care
     Dosage: 2 MG, BID
     Route: 041
     Dates: start: 20210707, end: 20210711
  7. HYDROCORTISONE SODIUM SUCCINATE [Concomitant]
     Active Substance: HYDROCORTISONE SODIUM SUCCINATE
     Indication: Allergic transfusion reaction
     Dosage: 300 MG, QD
     Route: 041
     Dates: start: 20210711, end: 20210711
  8. MELPHALAN [Concomitant]
     Active Substance: MELPHALAN
     Indication: Bone marrow transplant
     Dosage: UNK
     Route: 065
  9. MAGNESIUM OXIDE [Concomitant]
     Active Substance: MAGNESIUM OXIDE
     Indication: Constipation
     Dosage: 500 MG, TID
     Route: 048
     Dates: start: 20210419

REACTIONS (14)
  - Disseminated intravascular coagulation [Recovered/Resolved]
  - Sepsis [Recovered/Resolved]
  - Diplegia [Recovered/Resolved]
  - Febrile neutropenia [Recovered/Resolved]
  - Hemiparesis [Recovered/Resolved with Sequelae]
  - Hypoglossal nerve paralysis [Recovered/Resolved]
  - Facial paralysis [Recovered/Resolved]
  - Myelitis [Recovered/Resolved]
  - Engraftment syndrome [Recovered/Resolved]
  - Graft versus host disease in skin [Recovered/Resolved]
  - Acute kidney injury [Recovered/Resolved]
  - Hypertension [Recovered/Resolved]
  - Oral disorder [Recovered/Resolved]
  - Hypoalbuminaemia [Recovered/Resolved]

NARRATIVE: CASE EVENT DATE: 20210810
